FAERS Safety Report 12838068 (Version 2)
Quarter: 2016Q4

REPORT INFORMATION
  Report Type: Spontaneous
  Country: IT (occurrence: IT)
  Receive Date: 20161012
  Receipt Date: 20161015
  Transmission Date: 20170207
  Serious: Yes (Other)
  Sender: FDA-Public Use
  Company Number: IT-ACCORD-044751

PATIENT
  Age: 77 Year
  Sex: Female
  Weight: 65 kg

DRUGS (17)
  1. PACLITAXEL ACCORD [Suspect]
     Active Substance: PACLITAXEL
     Indication: LUNG NEOPLASM
     Dosage: STRENGTH: 6 MG/ML
     Route: 042
     Dates: start: 20160902, end: 20160929
  2. PARACODINA TEOFARMA [Concomitant]
     Indication: COUGH
     Route: 048
  3. CARBOPLATIN. [Concomitant]
     Active Substance: CARBOPLATIN
     Indication: LUNG NEOPLASM
     Route: 042
     Dates: start: 20160902, end: 20160929
  4. DILTIAZEM. [Concomitant]
     Active Substance: DILTIAZEM
     Indication: HYPERTENSION
     Route: 048
  5. ATENOLOL/ATENOLOL HYDROCHLORIDE [Concomitant]
     Indication: CARDIOMYOPATHY
  6. MIRTAZAPINE. [Concomitant]
     Active Substance: MIRTAZAPINE
     Indication: DEPRESSION
  7. ELIQUIS BRISTOL-MYERS [Concomitant]
     Indication: ATRIAL FIBRILLATION
     Dosage: STRENGTH: 2.5 MG
     Route: 048
  8. LASIX SANOFI [Concomitant]
     Indication: HYPERTENSION
     Dosage: STRENGTH: 25 MG
     Route: 048
  9. QUETIAPINE/QUETIAPINE FUMARATE [Concomitant]
     Indication: DEPRESSION
     Route: 048
  10. STILNOX SANOFI [Concomitant]
     Indication: DEPRESSION
  11. FOLINA TEOFARMA [Concomitant]
     Indication: ANAEMIA
  12. PANTORC PROGRAMMI [Concomitant]
     Indication: GASTRIC DISORDER
     Dosage: STRENGTH: 40 MG
     Route: 048
  13. TAVOR PFIZER [Concomitant]
     Indication: DEPRESSION
     Route: 048
  14. PURSENNID GLAXOSMITHKLINE [Concomitant]
     Dosage: STRENGTH: 12 MG
     Route: 048
  15. ACETYLCYSTEINE/ACETYLCYSTEINE SODIUM [Concomitant]
     Indication: COUGH
  16. DALMADORM MEDA PHARMA [Concomitant]
     Indication: DEPRESSION
     Route: 048
  17. LOSARTAN/LOSARTAN POTASSIUM [Concomitant]
     Indication: HYPERTENSION
     Route: 048

REACTIONS (3)
  - Cyanosis [Recovered/Resolved]
  - Patient uncooperative [Recovered/Resolved]
  - Flushing [Recovered/Resolved]

NARRATIVE: CASE EVENT DATE: 20160929
